FAERS Safety Report 5520035-5 (Version None)
Quarter: 2007Q4

REPORT INFORMATION
  Report Type: 
  Country: None (occurrence: None)
  Receive Date: 20071116
  Receipt Date: 20071112
  Transmission Date: 20080405
  Serious: Yes (Hospitalization, Other)
  Sender: FDA-Public Use
  Company Number: ES-AMGEN-US173770

PATIENT
  Sex: Female

DRUGS (4)
  1. ENBREL [Suspect]
     Indication: RHEUMATOID ARTHRITIS
     Route: 058
     Dates: start: 20051122, end: 20051201
  2. DEFLAZACORT [Concomitant]
  3. HYDROXYCHLOROQUINE SULFATE [Concomitant]
     Dosage: UNKNOWN
  4. MIOCRIN [Concomitant]
     Dates: start: 20040301

REACTIONS (2)
  - LYMPHOMA [None]
  - PLEURAL EFFUSION [None]
